FAERS Safety Report 19838961 (Version 1)
Quarter: 2021Q3

REPORT INFORMATION
  Report Type: Spontaneous
  Country: US (occurrence: US)
  Receive Date: 20210914
  Receipt Date: 20210914
  Transmission Date: 20211014
  Serious: No
  Sender: FDA-Public Use
  Company Number: None

PATIENT
  Age: 50 Year
  Sex: Female

DRUGS (1)
  1. TRIAMCINOLONE 0.1% CREAM, 0.001 [Suspect]
     Active Substance: TRIAMCINOLONE
     Indication: ANKYLOSING SPONDYLITIS
     Dosage: APPLLY TO AFFECTED AREA(S) TWICE DAILY AS DIRECTED
     Dates: start: 202103

REACTIONS (1)
  - COVID-19 [None]
